FAERS Safety Report 24987701 (Version 3)
Quarter: 2025Q1

REPORT INFORMATION
  Report Type: Spontaneous
  Country: FR (occurrence: FR)
  Receive Date: 20250219
  Receipt Date: 20250306
  Transmission Date: 20250408
  Serious: Yes (Life-Threatening, Other)
  Sender: SANOFI AVENTIS
  Company Number: None

PATIENT
  Age: 71 Year
  Sex: Male
  Weight: 88 kg

DRUGS (40)
  1. ENOXAPARIN SODIUM [Suspect]
     Active Substance: ENOXAPARIN SODIUM
     Indication: Thrombosis prophylaxis
     Dosage: 0.4 ML, QD
     Route: 058
     Dates: start: 20241230, end: 20250109
  2. PANTOPRAZOLE SODIUM [Suspect]
     Active Substance: PANTOPRAZOLE SODIUM
     Indication: Prophylaxis against gastrointestinal ulcer
     Dosage: 40 G, QD
     Route: 042
     Dates: end: 20250113
  3. PANTOPRAZOLE SODIUM [Suspect]
     Active Substance: PANTOPRAZOLE SODIUM
     Dosage: 20 0-0-1
  4. ACETAMINOPHEN [Suspect]
     Active Substance: ACETAMINOPHEN
     Indication: Pain
     Route: 042
     Dates: start: 20241230, end: 20250105
  5. OCTREOTIDE [Suspect]
     Active Substance: OCTREOTIDE
     Indication: Antibiotic prophylaxis
  6. OCTREOTIDE [Suspect]
     Active Substance: OCTREOTIDE
     Indication: Tumour of ampulla of Vater
     Dosage: 100 UG, TID
     Route: 058
     Dates: start: 20241230, end: 20250109
  7. PIPERACILLIN AND TAZOBACTAM [Suspect]
     Active Substance: PIPERACILLIN SODIUM\TAZOBACTAM SODIUM
     Indication: Lung disorder
     Dosage: 12.000G QD
     Route: 042
     Dates: start: 20250101, end: 20250102
  8. PIPERACILLIN AND TAZOBACTAM [Suspect]
     Active Substance: PIPERACILLIN SODIUM\TAZOBACTAM SODIUM
     Indication: Antibiotic prophylaxis
  9. DIAZEPAM [Suspect]
     Active Substance: DIAZEPAM
     Indication: Anxiety
     Dosage: 40 MG, QD
     Route: 042
     Dates: start: 20250103, end: 20250104
  10. ERYTHROMYCIN [Suspect]
     Active Substance: ERYTHROMYCIN
     Indication: Impaired gastric emptying
     Dosage: 200 MG, Q6H
     Route: 042
     Dates: start: 20241230, end: 20250103
  11. PROPOFOL [Suspect]
     Active Substance: PROPOFOL
     Indication: Sedation
     Route: 042
     Dates: start: 20250103, end: 20250113
  12. OXYCODONE [Suspect]
     Active Substance: OXYCODONE
     Indication: Pain
     Dosage: 5 MG, Q6H
     Route: 042
     Dates: start: 20250102, end: 20250103
  13. MIDAZOLAM [Suspect]
     Active Substance: MIDAZOLAM
     Indication: Sedation
     Dates: start: 20250104, end: 20250109
  14. MIDAZOLAM [Suspect]
     Active Substance: MIDAZOLAM
     Dates: start: 20250106
  15. MIDAZOLAM [Suspect]
     Active Substance: MIDAZOLAM
     Route: 065
     Dates: start: 20250104, end: 20250109
  16. MIDAZOLAM [Suspect]
     Active Substance: MIDAZOLAM
     Route: 065
     Dates: start: 20250106
  17. LINEZOLID [Suspect]
     Active Substance: LINEZOLID
     Indication: Lung disorder
     Dosage: 6 G, QD
     Route: 042
     Dates: start: 20250103, end: 20250104
  18. MICAFUNGIN [Suspect]
     Active Substance: MICAFUNGIN SODIUM
     Indication: Lung disorder
     Dosage: 100 MG, QD
     Route: 042
     Dates: start: 20250103, end: 20250104
  19. PIPERACILLIN SODIUM\TAZOBACTAM SODIUM [Suspect]
     Active Substance: PIPERACILLIN SODIUM\TAZOBACTAM SODIUM
     Indication: Lung disorder
     Dosage: 12 G, QD
     Route: 042
     Dates: start: 20250101, end: 20250102
  20. MEROPENEM [Suspect]
     Active Substance: MEROPENEM
     Indication: Lung disorder
     Route: 042
     Dates: start: 20250103, end: 20250111
  21. MEROPENEM [Suspect]
     Active Substance: MEROPENEM
     Indication: Pneumonia pneumococcal
  22. NEFOPAM [Suspect]
     Active Substance: NEFOPAM
     Indication: Pain
     Dosage: 100 MG, QD
     Route: 042
     Dates: start: 20241231, end: 20250101
  23. HEPARIN SODIUM [Suspect]
     Active Substance: HEPARIN SODIUM
     Indication: Thrombosis prophylaxis
     Route: 042
     Dates: start: 20250102, end: 20250115
  24. INSULIN NOS [Suspect]
     Active Substance: INSULIN NOS
     Indication: Type 2 diabetes mellitus
     Route: 042
     Dates: start: 20241230
  25. MYCAMINE [Suspect]
     Active Substance: MICAFUNGIN SODIUM
     Indication: Pneumonia pneumococcal
     Dates: start: 20250113
  26. MYCAMINE [Suspect]
     Active Substance: MICAFUNGIN SODIUM
     Indication: Lung disorder
     Dosage: 100.000MG QD
     Route: 042
     Dates: start: 20250103, end: 20250104
  27. MYCAMINE [Suspect]
     Active Substance: MICAFUNGIN SODIUM
     Route: 065
     Dates: start: 20250113
  28. ACUPAN [Suspect]
     Active Substance: NEFOPAM HYDROCHLORIDE
     Indication: Pain
     Dosage: 100 MG, QD
     Route: 042
     Dates: start: 20241231, end: 20250101
  29. INSULIN HUMAN [Suspect]
     Active Substance: INSULIN HUMAN
     Indication: Type 2 diabetes mellitus
     Route: 042
     Dates: start: 20241230
  30. AMIODARONE [Concomitant]
     Active Substance: AMIODARONE
     Dosage: 1-0-0
  31. ALBUTEROL [Concomitant]
     Active Substance: ALBUTEROL
  32. REPAGLINIDE [Concomitant]
     Active Substance: REPAGLINIDE
     Dosage: 1 DF, QD (0.5; 1-0-0)
  33. INNOVAIR [Concomitant]
     Active Substance: BECLOMETHASONE DIPROPIONATE\FORMOTEROL
  34. BISOPROLOL [Concomitant]
     Active Substance: BISOPROLOL
     Dosage: 2.5; 1-0-0
  35. BENSERAZIDE HYDROCHLORIDE\LEVODOPA [Concomitant]
     Active Substance: BENSERAZIDE HYDROCHLORIDE\LEVODOPA
  36. JANUMET [Concomitant]
     Active Substance: METFORMIN HYDROCHLORIDE\SITAGLIPTIN PHOSPHATE
  37. SPIRIVA [Concomitant]
     Active Substance: TIOTROPIUM BROMIDE MONOHYDRATE
     Dosage: 2 DF, QD (2-0-0)
  38. APIXABAN [Concomitant]
     Active Substance: APIXABAN
  39. ACUPAN [Suspect]
     Active Substance: NEFOPAM HYDROCHLORIDE
     Indication: Pain
     Dosage: 100MG, QD
     Route: 042
     Dates: start: 20241231, end: 20250101
  40. INSULIN HUMAN [Suspect]
     Active Substance: INSULIN HUMAN
     Indication: Type 2 diabetes mellitus
     Route: 042
     Dates: start: 20241230

REACTIONS (10)
  - Shock haemorrhagic [Recovering/Resolving]
  - Anti factor V antibody [Not Recovered/Not Resolved]
  - Hypoxia [Unknown]
  - Hepatic failure [Unknown]
  - Intra-abdominal haemorrhage [Unknown]
  - Cell death [Unknown]
  - Benign recurrent intrahepatic cholestasis [Unknown]
  - Hypoglycaemia [Unknown]
  - Coagulopathy [Unknown]
  - Device related infection [Unknown]

NARRATIVE: CASE EVENT DATE: 20250107
